FAERS Safety Report 7530357-4 (Version None)
Quarter: 2011Q2

REPORT INFORMATION
  Report Type: 
  Country: None (occurrence: None)
  Receive Date: 20110607
  Receipt Date: 20110524
  Transmission Date: 20111010
  Serious: Yes (Hospitalization)
  Sender: FDA-Public Use
  Company Number: US-UCBSA-029341

PATIENT
  Sex: Male
  Weight: 87.99 kg

DRUGS (19)
  1. CIMZIA [Suspect]
     Indication: CROHN'S DISEASE
     Route: 058
     Dates: start: 20090609, end: 20110324
  2. FERROUS SULFATE TAB [Concomitant]
     Route: 048
  3. MULTIGENE [Concomitant]
     Route: 048
  4. SIMVASTATIN [Concomitant]
     Route: 048
  5. GABAPENTIN [Concomitant]
     Dosage: 2 CAPSULES
     Route: 048
  6. LEXAPRO [Concomitant]
     Route: 048
  7. QUESTRAN [Concomitant]
     Dosage: 1 PACK
     Route: 048
  8. TYLENOL-500 [Concomitant]
  9. CIMZIA [Suspect]
     Route: 058
     Dates: start: 20110426
  10. PANTOPRAZOLE SODIUM DELAYED RELEASE [Concomitant]
     Route: 048
  11. FOLIC ACID [Concomitant]
     Route: 048
  12. CARBAMAZEPINE [Concomitant]
     Dosage: 1.5 TABLETS DAILY AND 2 TABLETS AT BEDTIME
     Route: 048
  13. CHOLESTYRAMINE [Concomitant]
     Dosage: 1 ORAL PACKET
     Route: 048
  14. ALIGN CAPLETS [Concomitant]
  15. LOPERAMIDE HCL [Concomitant]
     Dosage: 1 TO 2 TABLETS BEFORE EVERY MEAL AT BEDTIME
  16. PENTASA EXTENDED RELEASE [Concomitant]
     Route: 048
  17. CALCITRIOL [Concomitant]
     Route: 048
  18. LEVOTHYROXINE SODIUM [Concomitant]
     Route: 048
  19. AMITRIPTYLINE HCL [Concomitant]
     Route: 048

REACTIONS (5)
  - DEHYDRATION [None]
  - ANAEMIA [None]
  - INFECTION [None]
  - ENTEROCUTANEOUS FISTULA [None]
  - DEVICE RELATED INFECTION [None]
